FAERS Safety Report 19867932 (Version 1)
Quarter: 2021Q3

REPORT INFORMATION
  Report Type: Spontaneous
  Country: US (occurrence: US)
  Receive Date: 20210922
  Receipt Date: 20210922
  Transmission Date: 20211014
  Serious: No
  Sender: FDA-Public Use
  Company Number: US-TRIS PHARMA, INC.-21US009885

PATIENT

DRUGS (1)
  1. QUILLIVANT XR [Suspect]
     Active Substance: METHYLPHENIDATE HYDROCHLORIDE
     Indication: ATTENTION DEFICIT HYPERACTIVITY DISORDER
     Dosage: 2.5 MILLIGRAM, QD
     Route: 048
     Dates: start: 202010

REACTIONS (3)
  - Insomnia [Not Recovered/Not Resolved]
  - Restlessness [Not Recovered/Not Resolved]
  - Off label use [Unknown]
